FAERS Safety Report 15701015 (Version 1)
Quarter: 2018Q4

REPORT INFORMATION
  Report Type: Spontaneous
  Country: US (occurrence: US)
  Receive Date: 20181207
  Receipt Date: 20181207
  Transmission Date: 20190205
  Serious: No
  Sender: FDA-Public Use
  Company Number: PHEH2018US050475

PATIENT

DRUGS (1)
  1. COSENTYX [Suspect]
     Active Substance: SECUKINUMAB
     Indication: PSORIASIS
     Dosage: UNK
     Route: 065

REACTIONS (7)
  - Paraesthesia [Unknown]
  - Headache [Unknown]
  - Rhinorrhoea [Unknown]
  - Arthralgia [Unknown]
  - Fatigue [Unknown]
  - Ear congestion [Unknown]
  - Depression [Unknown]
